FAERS Safety Report 6654135-3 (Version None)
Quarter: 2010Q1

REPORT INFORMATION
  Report Type: 
  Country: None (occurrence: None)
  Receive Date: 20100326
  Receipt Date: 20100315
  Transmission Date: 20100710
  Serious: Yes (Other)
  Sender: FDA-Public Use
  Company Number: DE-PFIZER INC-2010032696

PATIENT
  Age: 76 Year
  Sex: Female

DRUGS (2)
  1. AROMASIN [Suspect]
     Dosage: UNK
     Dates: start: 20091101
  2. LEVODOPA [Concomitant]
     Dosage: UNK

REACTIONS (2)
  - BACK PAIN [None]
  - MENTAL DISORDER [None]
